FAERS Safety Report 9013403 (Version 1)
Quarter: 2013Q1

REPORT INFORMATION
  Report Type: Spontaneous
  Country: US (occurrence: None)
  Receive Date: 20130107
  Receipt Date: 20130107
  Transmission Date: 20140127
  Serious: No
  Sender: FDA-Public Use
  Company Number: None

PATIENT
  Sex: Female
  Weight: 68.95 kg

DRUGS (1)
  1. ESCITALOPRAM [Suspect]
     Indication: DEPRESSION
     Dosage: ESCITALOPRAM 10MG DAILY (PO)
     Route: 048
     Dates: start: 201211

REACTIONS (3)
  - Restlessness [None]
  - Tachyphrenia [None]
  - Agitation [None]
